FAERS Safety Report 18316532 (Version 3)
Quarter: 2020Q4

REPORT INFORMATION
  Report Type: Report from Study
  Country: None (occurrence: US)
  Receive Date: 20200927
  Receipt Date: 20201119
  Transmission Date: 20210113
  Serious: Yes (Hospitalization, Other)
  Sender: FDA-Public Use
  Company Number: US-ABBVIE-20K-163-3523909-00

PATIENT
  Age: 75 Year
  Sex: Female
  Weight: 77.18 kg

DRUGS (4)
  1. HUMIRA [Suspect]
     Active Substance: ADALIMUMAB
     Indication: PSORIASIS
     Route: 058
  2. HUMIRA [Suspect]
     Active Substance: ADALIMUMAB
     Indication: PSORIASIS
     Dosage: CITRATE FREE
     Route: 058
     Dates: end: 20200615
  3. HUMIRA [Suspect]
     Active Substance: ADALIMUMAB
     Dosage: CITRATE FREE
     Route: 058
     Dates: start: 20200810
  4. HUMIRA [Suspect]
     Active Substance: ADALIMUMAB
     Dosage: CITRATE FREE
     Route: 058

REACTIONS (10)
  - Cardiac disorder [Recovering/Resolving]
  - Neck pain [Unknown]
  - Post procedural haemorrhage [Unknown]
  - Device issue [Unknown]
  - Pruritus [Unknown]
  - Spinal operation [Recovering/Resolving]
  - Therapeutic response shortened [Unknown]
  - Psoriasis [Unknown]
  - Injection site pain [Recovering/Resolving]
  - Coronary artery bypass [Unknown]

NARRATIVE: CASE EVENT DATE: 20190829
